FAERS Safety Report 4717099-5 (Version None)
Quarter: 2005Q3

REPORT INFORMATION
  Report Type: 
  Country: None (occurrence: None)
  Receive Date: 20050715
  Receipt Date: 20050707
  Transmission Date: 20060218
  Serious: No
  Sender: FDA-Public Use
  Company Number: 11758

PATIENT
  Age: 68 Year
  Sex: Female

DRUGS (3)
  1. METHOTREXATE [Suspect]
     Indication: RHEUMATOID ARTHRITIS
     Dosage: 10 MG/WEEKLY/1702.5 MG TOTAL
  2. HYDROXYCHLOROQUINE SULFATE [Concomitant]
  3. FOLATE SODIUM [Concomitant]

REACTIONS (3)
  - BICYTOPENIA [None]
  - C-REACTIVE PROTEIN INCREASED [None]
  - ERYTHROLEUKAEMIA [None]
